FAERS Safety Report 5003378-3 (Version None)
Quarter: 2006Q2

REPORT INFORMATION
  Report Type: 
  Country: None (occurrence: None)
  Receive Date: 20060511
  Receipt Date: 20060503
  Transmission Date: 20061013
  Serious: Yes (Other)
  Sender: FDA-Public Use
  Company Number: 2006059869

PATIENT
  Age: 23 Year
  Sex: Female

DRUGS (1)
  1. DILANTIN [Suspect]
     Indication: CEREBRAL HAEMORRHAGE
     Dosage: 300 MG (1 D), ORAL
     Route: 048
     Dates: start: 19890523, end: 19890621

REACTIONS (5)
  - HEPATIC FUNCTION ABNORMAL [None]
  - HYPOPROTEINAEMIA [None]
  - PRURITUS [None]
  - PYREXIA [None]
  - RASH MACULO-PAPULAR [None]
